FAERS Safety Report 9053695 (Version 1)
Quarter: 2013Q1

REPORT INFORMATION
  Report Type: Spontaneous
  Country: US (occurrence: US)
  Receive Date: 20130208
  Receipt Date: 20130208
  Transmission Date: 20140127
  Serious: No
  Sender: FDA-Public Use
  Company Number: US-BAYER-2013-010523

PATIENT
  Sex: Female

DRUGS (8)
  1. BETASERON [Suspect]
     Dosage: 0.25 MG, QOD
     Route: 058
  2. AMBIEN [Concomitant]
     Dosage: 10 MG, UNK
  3. OXCARBAZEPINE [Concomitant]
     Dosage: 150 MG, UNK
  4. LAMOTRIGINE [Concomitant]
     Dosage: 25 MG, UNK
  5. WELLBUTRIN XL [Concomitant]
     Dosage: 300 MG, UNK
  6. VITAMIN B12 NOS [Concomitant]
     Dosage: 1000 DF, UNK
  7. VITAMIN D [Concomitant]
     Dosage: 400 U, UNK
  8. ADIPEX-P [Concomitant]
     Dosage: 37.5 MG, UNK

REACTIONS (3)
  - Urticaria [Recovered/Resolved]
  - Weight increased [Unknown]
  - Fall [Unknown]
